FAERS Safety Report 9062466 (Version 1)
Quarter: 2013Q1

REPORT INFORMATION
  Report Type: Spontaneous
  Country: US (occurrence: None)
  Receive Date: 20130122
  Receipt Date: 20130122
  Transmission Date: 20140127
  Serious: Yes (Death)
  Sender: FDA-Public Use
  Company Number: 1552927

PATIENT
  Age: 47 Year
  Sex: Male

DRUGS (3)
  1. (MORPHINE SULPHATE) [Suspect]
     Indication: PRODUCT USED FOR UNKNOWN INDICATION
     Dosage: NOT REPORTED,  UNKNOWN,  UNKNOWN?UNKNOWN
  2. (METHADONE) [Suspect]
     Indication: PRODUCT USED FOR UNKNOWN INDICATION
     Dosage: NOT REPORTED,  UNKNOWN,  UNKNOWN?UNKNOWN
  3. (ETHANOL) [Suspect]
     Indication: PRODUCT USED FOR UNKNOWN INDICATION
     Dosage: NOT REPORTED,  UNKNOWN,  UNKNOWN?UNKNOWN

REACTIONS (4)
  - Cardiac arrest [None]
  - Respiratory arrest [None]
  - Self-medication [None]
  - Poisoning [None]
